FAERS Safety Report 5091033-3 (Version None)
Quarter: 2006Q3

REPORT INFORMATION
  Report Type: 
  Country: None (occurrence: None)
  Receive Date: 20060829
  Receipt Date: 20060523
  Transmission Date: 20061208
  Serious: No
  Sender: FDA-Public Use
  Company Number: S2006US08118

PATIENT
  Age: 33 Year
  Sex: Male

DRUGS (1)
  1. ACYCLOVIR [Suspect]
     Route: 048

REACTIONS (1)
  - STOMACH DISCOMFORT [None]
